FAERS Safety Report 20332005 (Version 5)
Quarter: 2022Q3

REPORT INFORMATION
  Report Type: Report from Study
  Country: BR (occurrence: None)
  Receive Date: 20220113
  Receipt Date: 20220720
  Transmission Date: 20221026
  Serious: Yes (Other)
  Sender: FDA-Public Use
  Company Number: BR-Merck Healthcare KGaA-9260020

PATIENT
  Age: 47 Year
  Sex: Female

DRUGS (5)
  1. INTERFERON BETA-1A [Suspect]
     Active Substance: INTERFERON BETA-1A
     Indication: Multiple sclerosis
     Dates: start: 20190904, end: 20200824
  2. INTERFERON BETA-1A [Suspect]
     Active Substance: INTERFERON BETA-1A
     Dosage: BIO-MANGUINHOS BATCH NUMBER 2010332 AND EXPIRY DATE DEC 2022 .
     Route: 058
     Dates: start: 20200824
  3. REBIF [Suspect]
     Active Substance: INTERFERON BETA-1A
     Indication: Multiple sclerosis
     Dates: start: 20140205
  4. REBIF [Suspect]
     Active Substance: INTERFERON BETA-1A
     Dates: start: 20140505, end: 20190902
  5. KETOROLAC [Concomitant]
     Active Substance: KETOROLAC TROMETHAMINE
     Indication: Product used for unknown indication

REACTIONS (7)
  - Retinal detachment [Not Recovered/Not Resolved]
  - Conjunctival haemorrhage [Not Recovered/Not Resolved]
  - Visual impairment [Not Recovered/Not Resolved]
  - Eye laser surgery [Not Recovered/Not Resolved]
  - Choroidal effusion [Not Recovered/Not Resolved]
  - Diabetes mellitus [Not Recovered/Not Resolved]
  - Confusional state [Unknown]

NARRATIVE: CASE EVENT DATE: 20210101
